FAERS Safety Report 5475831-X (Version None)
Quarter: 2007Q4

REPORT INFORMATION
  Report Type: 
  Country: None (occurrence: None)
  Receive Date: 20071003
  Receipt Date: 20071002
  Transmission Date: 20080405
  Serious: Yes (Other)
  Sender: FDA-Public Use
  Company Number: B0489421A

PATIENT
  Age: 1 Year

DRUGS (3)
  1. VENETLIN [Suspect]
     Indication: ASTHMA
     Route: 055
     Dates: start: 20070927
  2. INTAL [Concomitant]
     Route: 055
  3. THEO-DUR [Concomitant]
     Route: 048

REACTIONS (1)
  - LOSS OF CONSCIOUSNESS [None]
